FAERS Safety Report 8380877-8 (Version None)
Quarter: 2012Q2

REPORT INFORMATION
  Report Type: 
  Country: None (occurrence: None)
  Receive Date: 20120523
  Receipt Date: 20120515
  Transmission Date: 20120825
  Serious: Yes (Hospitalization, Disabling, Other)
  Sender: FDA-Public Use
  Company Number: US-MERCK-1111USA02615

PATIENT
  Age: 58 Year
  Sex: Female

DRUGS (4)
  1. HORMONES (UNSPECIFIED) [Concomitant]
     Route: 065
     Dates: start: 19990101, end: 20080101
  2. FOSAMAX [Suspect]
     Route: 048
  3. FOSAMAX [Suspect]
     Indication: OSTEOPENIA
     Route: 048
     Dates: start: 20000101
  4. ALENDRONATE SODIUM [Suspect]
     Route: 065
     Dates: start: 20080721

REACTIONS (15)
  - BREAST DISORDER [None]
  - INTERVERTEBRAL DISC DEGENERATION [None]
  - FEMUR FRACTURE [None]
  - HYPERCHOLESTEROLAEMIA [None]
  - HIATUS HERNIA [None]
  - POST PROCEDURAL HAEMORRHAGE [None]
  - CYST [None]
  - TOOTH DISORDER [None]
  - ASTHMA [None]
  - FALL [None]
  - ANGIOPATHY [None]
  - BLOOD GLUCOSE INCREASED [None]
  - HYPERTENSION [None]
  - FIBROCYSTIC BREAST DISEASE [None]
  - BASAL CELL CARCINOMA [None]
